FAERS Safety Report 7065082-X (Version None)
Quarter: 2010Q4

REPORT INFORMATION
  Report Type: 
  Country: None (occurrence: None)
  Receive Date: 20101027
  Receipt Date: 19900316
  Transmission Date: 20110411
  Serious: Yes (Death)
  Sender: FDA-Public Use
  Company Number: US-ROCHE-900200319001

PATIENT
  Age: 27 Year
  Sex: Female
  Weight: 49.9 kg

DRUGS (7)
  1. CEFTRIAXONE SODIUM [Suspect]
     Route: 042
     Dates: start: 19900315, end: 19900316
  2. RED BLOOD CELLS, CONCENTRATED [Concomitant]
     Route: 065
  3. HYDROXYUREA [Concomitant]
     Route: 065
  4. POTASSIUM CHLORIDE [Concomitant]
     Route: 065
  5. MORPHINE [Concomitant]
     Route: 065
  6. ATIVAN [Concomitant]
     Route: 065
  7. HYDRATHION [Concomitant]
     Route: 065

REACTIONS (4)
  - ERYTHEMA [None]
  - MYELOID LEUKAEMIA [None]
  - OROPHARYNGEAL PAIN [None]
  - PYREXIA [None]
